FAERS Safety Report 7532524-2 (Version None)
Quarter: 2011Q2

REPORT INFORMATION
  Report Type: 
  Country: None (occurrence: None)
  Receive Date: 20110608
  Receipt Date: 20110526
  Transmission Date: 20111010
  Serious: Yes (Other)
  Sender: FDA-Public Use
  Company Number: PHHY2011CH46033

PATIENT
  Sex: Female

DRUGS (2)
  1. RITALIN [Suspect]
     Indication: ATTENTION DEFICIT/HYPERACTIVITY DISORDER
     Dosage: AT A VARYING DAILY DOSE (0, 5 MGOR 7.5 MG MAXIMUM)
     Dates: start: 20110501
  2. MARCOUMAR [Interacting]
     Dosage: UNK UKN, UNK

REACTIONS (3)
  - TACHYCARDIA [None]
  - DRUG INTERACTION [None]
  - CHEST DISCOMFORT [None]
